FAERS Safety Report 9184254 (Version 1)
Quarter: 2013Q1

REPORT INFORMATION
  Report Type: Spontaneous
  Country: US (occurrence: US)
  Receive Date: 20130322
  Receipt Date: 20130322
  Transmission Date: 20140127
  Serious: Yes (Other)
  Sender: FDA-Public Use
  Company Number: US-BRISTOL-MYERS SQUIBB COMPANY-16484180

PATIENT
  Sex: Male

DRUGS (3)
  1. ERBITUX [Suspect]
     Indication: HEAD AND NECK CANCER
     Dosage: 1ST DOSE RECEIVED A WEEK AGO ?THEN 2ND + 3RD WEEKLY DOSES
  2. TAXOL [Suspect]
     Indication: HEAD AND NECK CANCER
     Dosage: 1ST DOSE RECEIVED A WEEK AGO?REPORTER THOUGHT THAT THE DOSE WAS 45MG
  3. CARBOPLATIN [Suspect]
     Indication: HEAD AND NECK CANCER
     Dosage: REPORTER THOUGHT THAT THE DOSE WAS 2 AREA UNDER THE CURVE (AUC)?1ST DOSE RECEIVED A WEEK AGO

REACTIONS (2)
  - Mucosal inflammation [Unknown]
  - Pharyngeal erythema [Recovering/Resolving]
